FAERS Safety Report 6338770-8 (Version None)
Quarter: 2009Q3

REPORT INFORMATION
  Report Type: 
  Country: None (occurrence: None)
  Receive Date: 20090903
  Receipt Date: 20090806
  Transmission Date: 20100115
  Serious: No
  Sender: FDA-Public Use
  Company Number: US-JNJFOC-20090802835

PATIENT
  Sex: Male
  Weight: 95.26 kg

DRUGS (3)
  1. INVEGA [Suspect]
     Route: 048
  2. INVEGA [Suspect]
     Indication: SCHIZOPHRENIA
     Route: 048
  3. PROLIXIN [Concomitant]
     Indication: SCHIZOPHRENIA

REACTIONS (2)
  - DELUSION [None]
  - INCORRECT DOSE ADMINISTERED [None]
